FAERS Safety Report 7578442-5 (Version None)
Quarter: 2011Q2

REPORT INFORMATION
  Report Type: 
  Country: None (occurrence: None)
  Receive Date: 20110622
  Receipt Date: 20110607
  Transmission Date: 20111010
  Serious: Yes (Other)
  Sender: FDA-Public Use
  Company Number: US-2011-10377

PATIENT
  Age: 28 Year
  Sex: Female

DRUGS (5)
  1. RAPAMYCIN (RAPAMYCIN) [Concomitant]
  2. CAMPATH [Concomitant]
  3. TACROLIMUS [Concomitant]
  4. BUSULFEX [Suspect]
     Indication: STEM CELL TRANSPLANT
     Dosage: INTRAVENOUS
     Route: 042
  5. FLUDARA [Suspect]
     Indication: STEM CELL TRANSPLANT

REACTIONS (1)
  - HYPERTHYROIDISM [None]
